FAERS Safety Report 25702559 (Version 1)
Quarter: 2025Q3

REPORT INFORMATION
  Report Type: Spontaneous
  Country: US (occurrence: US)
  Receive Date: 20250819
  Receipt Date: 20250819
  Transmission Date: 20251021
  Serious: Yes (Other)
  Sender: AMGEN
  Company Number: US-AMGEN-USASP2025160749

PATIENT
  Age: 53 Year
  Sex: Male

DRUGS (8)
  1. PREDNISONE [Suspect]
     Active Substance: PREDNISONE
     Indication: End stage renal disease
     Route: 065
  2. PREDNISONE [Suspect]
     Active Substance: PREDNISONE
     Indication: Diabetic nephropathy
  3. TACROLIMUS [Concomitant]
     Active Substance: TACROLIMUS
     Indication: End stage renal disease
  4. TACROLIMUS [Concomitant]
     Active Substance: TACROLIMUS
     Indication: Diabetic nephropathy
  5. MYCOPHENOLIC ACID [Concomitant]
     Active Substance: MYCOPHENOLIC ACID
     Indication: End stage renal disease
  6. MYCOPHENOLIC ACID [Concomitant]
     Active Substance: MYCOPHENOLIC ACID
     Indication: Diabetic nephropathy
  7. SIROLIMUS [Concomitant]
     Active Substance: SIROLIMUS
     Indication: End stage renal disease
  8. SIROLIMUS [Concomitant]
     Active Substance: SIROLIMUS
     Indication: Diabetic nephropathy

REACTIONS (2)
  - Delayed graft function [Unknown]
  - Nephropathy [Unknown]
